FAERS Safety Report 16804623 (Version 3)
Quarter: 2019Q4

REPORT INFORMATION
  Report Type: Spontaneous
  Country: US (occurrence: US)
  Receive Date: 20190913
  Receipt Date: 20191014
  Transmission Date: 20200122
  Serious: Yes (Death, Hospitalization)
  Sender: FDA-Public Use
  Company Number: US-ASTRAZENECA-2019SF28608

PATIENT
  Age: 80 Year
  Sex: Male

DRUGS (1)
  1. LUMOXITI [Suspect]
     Active Substance: MOXETUMOMAB PASUDOTOX-TDFK
     Indication: HAIRY CELL LEUKAEMIA
     Route: 042
     Dates: start: 20190903, end: 20190903

REACTIONS (2)
  - Condition aggravated [Unknown]
  - Death [Fatal]
